FAERS Safety Report 4806538-7 (Version None)
Quarter: 2005Q4

REPORT INFORMATION
  Report Type: 
  Country: None (occurrence: None)
  Receive Date: 20051019
  Receipt Date: 20050926
  Transmission Date: 20060501
  Serious: Yes (Other)
  Sender: FDA-Public Use
  Company Number: 6017815

PATIENT
  Age: 28 Year
  Sex: Female

DRUGS (1)
  1. LURANTAL (ISOTRETINOIN)) [Suspect]
     Indication: ACNE
     Dosage: 30,000 MG (30 MG, 1 IN 1 D) ORAL
     Route: 048
     Dates: start: 20050228, end: 20050706

REACTIONS (5)
  - ABORTION INDUCED [None]
  - DRUG EXPOSURE DURING PREGNANCY [None]
  - DRUG INTOLERANCE [None]
  - PREGNANCY WITH CONTRACEPTIVE DEVICE [None]
  - UNINTENDED PREGNANCY [None]
